FAERS Safety Report 23656664 (Version 1)
Quarter: 2024Q1

REPORT INFORMATION
  Report Type: Spontaneous
  Country: US (occurrence: US)
  Receive Date: 20240321
  Receipt Date: 20240321
  Transmission Date: 20240410
  Serious: Yes (Hospitalization, Other)
  Sender: FDA-Public Use
  Company Number: US-BRISTOL-MYERS SQUIBB COMPANY-2024-044241

PATIENT
  Age: 66 Year
  Sex: Male
  Weight: 85.73 kg

DRUGS (1)
  1. REVLIMID [Suspect]
     Active Substance: LENALIDOMIDE
     Indication: Plasma cell myeloma
     Dosage: 2WKSON,1WKOFF (2 WEEKS ON, 1 WEEK OFF)
     Route: 048

REACTIONS (3)
  - Asthenia [Unknown]
  - Dysgeusia [Unknown]
  - Pneumonia [Unknown]

NARRATIVE: CASE EVENT DATE: 20240301
